FAERS Safety Report 21027404 (Version 1)
Quarter: 2022Q2

REPORT INFORMATION
  Report Type: Spontaneous
  Country: FR (occurrence: FR)
  Receive Date: 20220630
  Receipt Date: 20220630
  Transmission Date: 20220720
  Serious: Yes (Death)
  Sender: FDA-Public Use
  Company Number: FR-PFIZER INC-PV202200011983

PATIENT
  Age: 84 Year
  Sex: Male

DRUGS (6)
  1. VYNDAQEL [Suspect]
     Active Substance: TAFAMIDIS MEGLUMINE
     Indication: Cardiac amyloidosis
     Dosage: 80 MG, DAILY
     Dates: end: 20210311
  2. FUROSEMIDE [Concomitant]
     Active Substance: FUROSEMIDE
     Indication: Cardiac failure
     Dosage: 500 MG, DAILY
  3. POTASSIUM [Concomitant]
     Active Substance: POTASSIUM
     Indication: Hypokalaemia
     Dosage: 1800 MG, DAILY
  4. WARFARIN SODIUM [Concomitant]
     Active Substance: WARFARIN SODIUM
     Indication: Atrial fibrillation
     Dosage: 2 MG, DAILY
  5. AMIODARONE [Concomitant]
     Active Substance: AMIODARONE
     Indication: Arrhythmia
     Dosage: 200 MG, DAILY
  6. OXAZEPAM [Concomitant]
     Active Substance: OXAZEPAM
     Indication: Anxiety
     Dosage: 10 MG

REACTIONS (1)
  - Death [Fatal]

NARRATIVE: CASE EVENT DATE: 20210301
